FAERS Safety Report 23314658 (Version 1)
Quarter: 2023Q4

REPORT INFORMATION
  Report Type: Spontaneous
  Country: US (occurrence: US)
  Receive Date: 20231219
  Receipt Date: 20231219
  Transmission Date: 20240109
  Serious: Yes (Hospitalization, Other)
  Sender: FDA-Public Use
  Company Number: US-SUN PHARMACEUTICAL INDUSTRIES LTD-2023R1-424358

PATIENT
  Age: 77 Year
  Sex: Male

DRUGS (2)
  1. ABIRATERONE [Suspect]
     Active Substance: ABIRATERONE
     Indication: Adenocarcinoma
     Dosage: 1 GRAM, DAILY
     Route: 065
  2. PREDNISONE [Concomitant]
     Active Substance: PREDNISONE
     Indication: Adenocarcinoma
     Dosage: 5 MILLIGRAM, DAILY
     Route: 065

REACTIONS (1)
  - Apparent mineralocorticoid excess [Recovering/Resolving]
